FAERS Safety Report 12447235 (Version 1)
Quarter: 2016Q2

REPORT INFORMATION
  Report Type: Spontaneous
  Country: US (occurrence: None)
  Receive Date: 20160607
  Receipt Date: 20160607
  Transmission Date: 20160815
  Serious: Yes (Disabling)
  Sender: FDA-Public Use
  Company Number: None

PATIENT
  Age: 75 Year
  Sex: Female
  Weight: 82.1 kg

DRUGS (6)
  1. NORCO [Concomitant]
     Active Substance: ACETAMINOPHEN\HYDROCODONE BITARTRATE
  2. MICARDIS [Concomitant]
     Active Substance: TELMISARTAN
  3. OMEPRAZOLE DR REDDYS [Suspect]
     Active Substance: OMEPRAZOLE
     Indication: GASTROENTERITIS
     Dosage: 30 PILLS ONCE A DAY BY MOUTH
     Route: 048
     Dates: end: 20160324
  4. HCTZ [Concomitant]
     Active Substance: HYDROCHLOROTHIAZIDE
  5. FERROUS SULFATE. [Concomitant]
     Active Substance: FERROUS SULFATE
  6. DOC Q LACE [Concomitant]
     Active Substance: DOCUSATE SODIUM

REACTIONS (6)
  - Burning sensation [None]
  - Headache [None]
  - Vulvovaginal pruritus [None]
  - Pain in extremity [None]
  - Peripheral swelling [None]
  - Weight decreased [None]

NARRATIVE: CASE EVENT DATE: 201302
